FAERS Safety Report 25732270 (Version 1)
Quarter: 2025Q3

REPORT INFORMATION
  Report Type: Spontaneous
  Country: KR (occurrence: KR)
  Receive Date: 20250827
  Receipt Date: 20250827
  Transmission Date: 20251021
  Serious: Yes (Hospitalization, Other)
  Sender: PFIZER
  Company Number: KR-PFIZER INC-PV202500101945

PATIENT
  Age: 72 Year
  Sex: Male

DRUGS (1)
  1. XYNTHA [Suspect]
     Active Substance: MOROCTOCOG ALFA
     Indication: Haemophilia
     Dosage: EVERY MONDAY AND FRIDAY
     Route: 042

REACTIONS (2)
  - Vascular access site haemorrhage [Recovered/Resolved]
  - Haemodialysis [Unknown]

NARRATIVE: CASE EVENT DATE: 20250813
